FAERS Safety Report 16298568 (Version 2)
Quarter: 2019Q2

REPORT INFORMATION
  Report Type: Spontaneous
  Country: PT (occurrence: PT)
  Receive Date: 20190510
  Receipt Date: 20190612
  Transmission Date: 20190711
  Serious: Yes (Life-Threatening, Other)
  Sender: FDA-Public Use
  Company Number: PT-AUROBINDO-AUR-APL-2019-024709

PATIENT

DRUGS (1)
  1. AMOXICILLIN GENERIS TABLET [Suspect]
     Active Substance: AMOXICILLIN
     Indication: TOOTH DISORDER
     Dosage: 1000 MILLIGRAM, DAILY
     Route: 048
     Dates: start: 20190408, end: 20190408

REACTIONS (2)
  - Obstructive airways disorder [Recovered/Resolved]
  - Skin reaction [Recovered/Resolved]

NARRATIVE: CASE EVENT DATE: 20190408
